FAERS Safety Report 8955922 (Version 1)
Quarter: 2012Q4

REPORT INFORMATION
  Report Type: 
  Country: US (occurrence: US)
  Receive Date: 20121210
  Receipt Date: 20121210
  Transmission Date: 20130627
  Serious: Yes (Other)
  Sender: FDA-Public Use
  Company Number: US-ASTRAZENECA-2012SE90654

PATIENT
  Age: 14 Year
  Sex: Male

DRUGS (5)
  1. PULMICORT RESPULES [Suspect]
     Indication: EOSINOPHILIC OESOPHAGITIS
     Route: 048
  2. OMEPRAZOLE [Suspect]
     Route: 048
  3. FLUTICASONE [Concomitant]
     Route: 045
  4. IRON [Concomitant]
     Route: 048
  5. CARAFATE [Concomitant]

REACTIONS (3)
  - Gastrointestinal haemorrhage [Unknown]
  - Off label use [Unknown]
  - Off label use [Unknown]
